FAERS Safety Report 13292884 (Version 2)
Quarter: 2017Q1

REPORT INFORMATION
  Report Type: Spontaneous
  Country: JP (occurrence: JP)
  Receive Date: 20170303
  Receipt Date: 20170314
  Transmission Date: 20170428
  Serious: Yes (Hospitalization, Other)
  Sender: FDA-Public Use
  Company Number: JP-WARNER CHILCOTT-2016-001623

PATIENT
  Age: 73 Year
  Sex: Female

DRUGS (6)
  1. METHYCOBAL [Concomitant]
     Active Substance: METHYLCOBALAMIN
     Indication: VITAMIN SUPPLEMENTATION
     Dosage: 500 MG, QD
     Route: 048
  2. RISEDRONATE SODIUM - BP [Suspect]
     Active Substance: RISEDRONATE SODIUM
     Indication: OSTEOPOROSIS
     Dosage: 2.5 MG, QD
     Route: 048
     Dates: start: 2007, end: 20130605
  3. CAMOSTAT MESILATE [Concomitant]
     Active Substance: CAMOSTAT MESYLATE
     Dosage: 300 MG, QD
     Route: 048
  4. WARFARIN POTASSIUM [Concomitant]
     Active Substance: WARFARIN POTASSIUM
     Indication: THROMBOSIS PROPHYLAXIS
     Dosage: 2.5 MG, QD
     Route: 048
  5. FOIPAN [Concomitant]
     Active Substance: CAMOSTAT MESYLATE
     Dosage: 100 MG, QD
     Route: 048
  6. MAGLAX [Concomitant]
     Active Substance: MAGNESIUM OXIDE
     Indication: CONSTIPATION
     Dosage: 330 MG, QD
     Route: 048

REACTIONS (21)
  - Hypoalbuminaemia [Recovering/Resolving]
  - Tenderness [Unknown]
  - Activities of daily living impaired [Unknown]
  - Skin ulcer [Recovered/Resolved]
  - Tongue dry [Unknown]
  - Blood urea increased [Recovering/Resolving]
  - Oedema peripheral [Recovering/Resolving]
  - Decreased appetite [Recovered/Resolved]
  - Oesophagitis [Recovered/Resolved]
  - Malnutrition [Unknown]
  - Pleural effusion [Recovering/Resolving]
  - Haemorrhoids [Recovering/Resolving]
  - Dyspepsia [Unknown]
  - Cachexia [Recovering/Resolving]
  - Contusion [Recovering/Resolving]
  - Chest discomfort [Unknown]
  - Impaired healing [Recovering/Resolving]
  - Occult blood positive [Recovered/Resolved]
  - Limb discomfort [Recovering/Resolving]
  - Dry mouth [Unknown]
  - Weight decreased [Unknown]

NARRATIVE: CASE EVENT DATE: 201303
